FAERS Safety Report 6571312-0 (Version None)
Quarter: 2010Q1

REPORT INFORMATION
  Report Type: 
  Country: None (occurrence: None)
  Receive Date: 20100201
  Receipt Date: 20100119
  Transmission Date: 20100710
  Serious: No
  Sender: FDA-Public Use
  Company Number: 2010010038

PATIENT
  Age: 80 Year
  Sex: Female

DRUGS (2)
  1. ONSOLIS [Suspect]
  2. LORTAB [Concomitant]

REACTIONS (1)
  - INTERCEPTED DRUG DISPENSING ERROR [None]
